FAERS Safety Report 11402638 (Version 1)
Quarter: 2015Q3

REPORT INFORMATION
  Report Type: Spontaneous
  Country: US (occurrence: US)
  Receive Date: 20150821
  Receipt Date: 20150821
  Transmission Date: 20151125
  Serious: No
  Sender: FDA-Public Use
  Company Number: US-ROCHE-1329360

PATIENT
  Sex: Male

DRUGS (3)
  1. PEGASYS [Suspect]
     Active Substance: PEGINTERFERON ALFA-2A
     Indication: HEPATITIS C
     Dosage: ONCE WEEKLY
     Route: 058
  2. RIBAVIRIN. [Suspect]
     Active Substance: RIBAVIRIN
     Indication: PRODUCT USED FOR UNKNOWN INDICATION
     Route: 065
  3. PROCRIT [Concomitant]
     Active Substance: ERYTHROPOIETIN
     Dosage: 40,000 UNITS/ML EVERY 7 DAYS
     Route: 058

REACTIONS (2)
  - Pruritus [Unknown]
  - Decreased appetite [Unknown]
